FAERS Safety Report 11465274 (Version 1)
Quarter: 2015Q3

REPORT INFORMATION
  Report Type: Spontaneous
  Country: GB (occurrence: GB)
  Receive Date: 20150907
  Receipt Date: 20150907
  Transmission Date: 20151125
  Serious: Yes (Hospitalization, Other)
  Sender: FDA-Public Use
  Company Number: GB-AUROBINDO-AUR-APL-2015-07657

PATIENT
  Age: 61 Year
  Sex: Female

DRUGS (15)
  1. AMOXICILLIN 500MG [Suspect]
     Active Substance: AMOXICILLIN
     Indication: PNEUMONIA
     Dosage: 500 MG, TWO TIMES A DAY
     Route: 065
     Dates: start: 20150723
  2. FOSTAIR [Concomitant]
     Active Substance: BECLOMETHASONE\FORMOTEROL
     Indication: PRODUCT USED FOR UNKNOWN INDICATION
     Dosage: REFUSED TO TAKE IT.
     Route: 065
  3. CLEXANE [Suspect]
     Active Substance: ENOXAPARIN SODIUM
     Indication: PROPHYLAXIS
     Route: 058
     Dates: start: 20150726
  4. OMEPRAZOLE. [Concomitant]
     Active Substance: OMEPRAZOLE
     Indication: PRODUCT USED FOR UNKNOWN INDICATION
     Route: 065
  5. FUROSEMIDE 40 MG [Suspect]
     Active Substance: FUROSEMIDE
     Indication: OEDEMA PERIPHERAL
     Dosage: 40 MG, UNK
     Route: 065
     Dates: start: 20150720
  6. LAXIDO [Suspect]
     Active Substance: POLYETHYLENE GLYCOL 3350\POTASSIUM CHLORIDE\SODIUM BICARBONATE\SODIUM CHLORIDE
     Indication: PRODUCT USED FOR UNKNOWN INDICATION
     Dosage: HOSPITAL PRESCRIBED IT DAILY EVEN AFTER SEVERE REACTION.
     Route: 065
  7. SALBUTAMOL [Suspect]
     Active Substance: ALBUTEROL
     Indication: ASTHMA
     Route: 055
     Dates: start: 20150720
  8. IODINE [Concomitant]
     Active Substance: IODINE
     Indication: SCAN WITH CONTRAST
     Route: 065
     Dates: start: 20150725
  9. SALBUTAMOL [Suspect]
     Active Substance: ALBUTEROL
     Indication: HYPERSENSITIVITY
  10. BENYLIN CHESTY COUGH [Concomitant]
     Indication: PRODUCT USED FOR UNKNOWN INDICATION
     Route: 065
  11. MENTHOL. [Concomitant]
     Active Substance: MENTHOL
  12. PREDNISOLONE. [Concomitant]
     Active Substance: PREDNISOLONE
     Indication: PRODUCT USED FOR UNKNOWN INDICATION
     Route: 065
  13. CO-AMILOFRUSE [Suspect]
     Active Substance: AMILORIDE\FUROSEMIDE
     Indication: PRODUCT USED FOR UNKNOWN INDICATION
     Dosage: 1 DF, ONCE A DAY (5MG/40MG TAKE ONE TABLET EVERY MORNING)
     Route: 048
     Dates: start: 20150726, end: 20150808
  14. OXYGEN. [Concomitant]
     Active Substance: OXYGEN
     Indication: PRODUCT USED FOR UNKNOWN INDICATION
     Dosage: DON^T KNOW HOW MUCH OR WHEN, NOT GIVEN TO ME EVEN ON DISCHARGE.
     Route: 065
  15. CODEINE LINCTUS [Concomitant]
     Active Substance: CHLOROFORM\CODEINE PHOSPHATE\DRIMIA MARITIMA BULB
     Indication: PRODUCT USED FOR UNKNOWN INDICATION
     Route: 065

REACTIONS (17)
  - Blood potassium decreased [Unknown]
  - Dry mouth [Unknown]
  - Blood calcium decreased [Unknown]
  - Dyspnoea [Unknown]
  - Septic shock [Unknown]
  - Respiratory rate increased [Unknown]
  - Diarrhoea [Unknown]
  - Pulmonary congestion [Unknown]
  - Contusion [Unknown]
  - Dizziness [Not Recovered/Not Resolved]
  - Oxygen saturation decreased [Unknown]
  - Cough [Unknown]
  - Drug interaction [Unknown]
  - Electrolyte imbalance [Unknown]
  - Blood chloride decreased [Unknown]
  - Heart rate increased [Unknown]
  - Hypotension [Unknown]

NARRATIVE: CASE EVENT DATE: 20150725
